FAERS Safety Report 17804845 (Version 3)
Quarter: 2020Q3

REPORT INFORMATION
  Report Type: Spontaneous
  Country: US (occurrence: US)
  Receive Date: 20200520
  Receipt Date: 20200915
  Transmission Date: 20201102
  Serious: No
  Sender: FDA-Public Use
  Company Number: NVSC2020US136795

PATIENT
  Sex: Female

DRUGS (1)
  1. VIVELLE?DOT [Suspect]
     Active Substance: ESTRADIOL
     Indication: PRODUCT USED FOR UNKNOWN INDICATION
     Dosage: 0.1 MG, Q2W
     Route: 065

REACTIONS (4)
  - Wrong technique in product usage process [Unknown]
  - Hot flush [Unknown]
  - Product adhesion issue [Unknown]
  - Drug ineffective [Unknown]
